FAERS Safety Report 9741421 (Version 2)
Quarter: 2013Q4

REPORT INFORMATION
  Report Type: Spontaneous
  Country: JP (occurrence: JP)
  Receive Date: 20131209
  Receipt Date: 20131218
  Transmission Date: 20140711
  Serious: Yes (Hospitalization, Other)
  Sender: FDA-Public Use
  Company Number: PHHY2013JP142227

PATIENT
  Age: 71 Year
  Sex: Female

DRUGS (2)
  1. EVEROLIMUS [Suspect]
     Indication: RENAL CELL CARCINOMA
     Dates: start: 201201
  2. EVEROLIMUS [Suspect]
     Dosage: UNK
     Route: 048

REACTIONS (4)
  - Pneumonia [Recovering/Resolving]
  - Cough [Recovering/Resolving]
  - Respiratory failure [Recovering/Resolving]
  - Malignant neoplasm progression [Unknown]
